FAERS Safety Report 5101968-0 (Version None)
Quarter: 2006Q3

REPORT INFORMATION
  Report Type: 
  Country: None (occurrence: None)
  Receive Date: 20060907
  Receipt Date: 20060831
  Transmission Date: 20061208
  Serious: Yes (Hospitalization)
  Sender: FDA-Public Use
  Company Number: 233846K06USA

PATIENT
  Age: 55 Year
  Sex: Female

DRUGS (1)
  1. REBIF [Suspect]
     Indication: MULTIPLE SCLEROSIS
     Dosage: 30 MCG, 3 IN 1 WEEKS, SUBCUTANEOUS
     Route: 058
     Dates: start: 20020701, end: 20030310

REACTIONS (10)
  - ACUTE MYOCARDIAL INFARCTION [None]
  - AKINESIA [None]
  - ANGINA PECTORIS [None]
  - CARDIAC DISORDER [None]
  - CATHETERISATION CARDIAC ABNORMAL [None]
  - DEPRESSION [None]
  - DRUG INTOLERANCE [None]
  - HYPOTHYROIDISM [None]
  - VASOSPASM [None]
  - VENTRICULAR DYSFUNCTION [None]
